FAERS Safety Report 5317848-1 (Version None)
Quarter: 2007Q2

REPORT INFORMATION
  Report Type: 
  Country: None (occurrence: None)
  Receive Date: 20070507
  Receipt Date: 20070427
  Transmission Date: 20071010
  Serious: Yes (Other)
  Sender: FDA-Public Use
  Company Number: PHEH2007US04030

PATIENT
  Age: 55 Year
  Sex: Female

DRUGS (1)
  1. ZELNORM [Suspect]
     Indication: IRRITABLE BOWEL SYNDROME
     Dosage: 6 MG, BID
     Dates: start: 20070201, end: 20070401

REACTIONS (6)
  - BLOOD PRESSURE FLUCTUATION [None]
  - CATHETERISATION CARDIAC [None]
  - CHEST PAIN [None]
  - DISCOMFORT [None]
  - DYSPEPSIA [None]
  - PAIN [None]
